FAERS Safety Report 19625451 (Version 2)
Quarter: 2021Q3

REPORT INFORMATION
  Report Type: Report from Study
  Country: US (occurrence: US)
  Receive Date: 20210729
  Receipt Date: 20210927
  Transmission Date: 20211014
  Serious: Yes (Other)
  Sender: FDA-Public Use
  Company Number: US-AMGEN-USASL2021113789

PATIENT
  Age: 55 Year
  Sex: Male

DRUGS (1)
  1. OTEZLA [Suspect]
     Active Substance: APREMILAST
     Indication: PSORIASIS
     Dosage: 30 MILLIGRAM, BID
     Route: 048

REACTIONS (6)
  - Illness [Recovered/Resolved]
  - Lower respiratory tract infection [Recovered/Resolved]
  - Feeling abnormal [Unknown]
  - Nausea [Unknown]
  - Sinusitis [Recovered/Resolved]
  - Adverse event [Unknown]
